FAERS Safety Report 6556617-1 (Version None)
Quarter: 2010Q1

REPORT INFORMATION
  Report Type: 
  Country: None (occurrence: None)
  Receive Date: 20100125
  Receipt Date: 20100111
  Transmission Date: 20100710
  Serious: Yes (Other)
  Sender: FDA-Public Use
  Company Number: 2010AL000315

PATIENT
  Age: 66 Year
  Sex: Male

DRUGS (3)
  1. DIAZEPAM TAB [Suspect]
     Dosage: 5 MG
  2. JUNIOR ASPIRIN [Concomitant]
  3. UNSPECIFIED TABLET [Concomitant]

REACTIONS (2)
  - DEPRESSED MOOD [None]
  - HUNGER [None]
